FAERS Safety Report 7039932-7 (Version None)
Quarter: 2010Q4

REPORT INFORMATION
  Report Type: 
  Country: None (occurrence: None)
  Receive Date: 20101012
  Receipt Date: 20100930
  Transmission Date: 20110411
  Serious: Yes (Other)
  Sender: FDA-Public Use
  Company Number: US-PFIZER INC-2010124527

PATIENT
  Sex: Male
  Weight: 62.132 kg

DRUGS (9)
  1. RELPAX [Suspect]
     Indication: MIGRAINE
     Dosage: UNK
     Route: 048
  2. TESTOSTERONE [Concomitant]
     Indication: PITUITARY TUMOUR REMOVAL
     Dosage: 0.2 ML, UNK
     Route: 062
  3. DIAZEPAM [Concomitant]
     Dosage: 10 MG, UNK
     Route: 048
  4. LEVOTHYROXINE [Concomitant]
     Dosage: 0.075 MG, 1X/DAY
     Route: 048
  5. OXYCODONE [Concomitant]
     Indication: PAIN
     Dosage: 6 MG, UNK
     Route: 048
  6. NADOLOL [Concomitant]
     Indication: HYPOTENSION
     Dosage: 5 MG, 1X/DAY
     Route: 048
  7. PREDNISONE [Concomitant]
     Dosage: 10 MG, 1X/DAY
     Route: 048
  8. ZOLPIDEM [Concomitant]
     Dosage: 20 MG, AS NEEDED
     Route: 048
  9. NORDITROPIN [Concomitant]
     Dosage: 0.2 MG, UNK

REACTIONS (6)
  - BRAIN NEOPLASM [None]
  - CERVICAL VERTEBRAL FRACTURE [None]
  - MEMORY IMPAIRMENT [None]
  - MIGRAINE [None]
  - PITUITARY TUMOUR [None]
  - ROAD TRAFFIC ACCIDENT [None]
